FAERS Safety Report 15672754 (Version 1)
Quarter: 2018Q4

REPORT INFORMATION
  Report Type: Report from Study
  Country: US (occurrence: US)
  Receive Date: 20181129
  Receipt Date: 20181129
  Transmission Date: 20190205
  Serious: No
  Sender: FDA-Public Use
  Company Number: US-TESARO-US-2017TSO01483

PATIENT
  Age: 72 Year
  Sex: Female

DRUGS (8)
  1. ZEJULA [Suspect]
     Active Substance: NIRAPARIB
     Indication: OVARIAN CANCER
     Dosage: 300 MG, QD
     Route: 048
     Dates: start: 20170616, end: 2017
  2. ZEJULA [Suspect]
     Active Substance: NIRAPARIB
     Dosage: 100 MG, QD
     Route: 048
     Dates: start: 20171004
  3. ZEJULA [Suspect]
     Active Substance: NIRAPARIB
     Dosage: 200 MG, QD
     Route: 048
     Dates: start: 20170728
  4. ZEJULA [Suspect]
     Active Substance: NIRAPARIB
     Dosage: 100 MG, QD
     Route: 048
  5. ZEJULA [Suspect]
     Active Substance: NIRAPARIB
     Dosage: 100 MG, QD
     Route: 048
  6. ZEJULA [Suspect]
     Active Substance: NIRAPARIB
     Dosage: 100 MG, QD
     Route: 048
  7. GABAPENTIN. [Concomitant]
     Active Substance: GABAPENTIN
     Indication: PRODUCT USED FOR UNKNOWN INDICATION
     Dosage: 100 MG, QD
  8. ZEJULA [Suspect]
     Active Substance: NIRAPARIB
     Dosage: 100 MG, QD
     Route: 048

REACTIONS (14)
  - Somnolence [Unknown]
  - Dizziness [Not Recovered/Not Resolved]
  - Blood pressure increased [Unknown]
  - Rhinorrhoea [Not Recovered/Not Resolved]
  - Vaginal discharge [Recovered/Resolved]
  - Hypotension [Not Recovered/Not Resolved]
  - Eastern Cooperative Oncology Group performance status worsened [Unknown]
  - Bone loss [Unknown]
  - Pain [Recovered/Resolved]
  - Fatigue [Recovered/Resolved]
  - Anaemia [Recovered/Resolved]
  - Neuropathy peripheral [Not Recovered/Not Resolved]
  - Ear discomfort [Not Recovered/Not Resolved]
  - Hypotonia [Recovering/Resolving]

NARRATIVE: CASE EVENT DATE: 201708
